FAERS Safety Report 8917505 (Version 1)
Quarter: 2012Q4

REPORT INFORMATION
  Report Type: 
  Country: BE (occurrence: BE)
  Receive Date: 20121120
  Receipt Date: 20121120
  Transmission Date: 20130627
  Serious: Yes (Other)
  Sender: FDA-Public Use
  Company Number: BE-ROCHE-1155855

PATIENT

DRUGS (3)
  1. TRASTUZUMAB [Suspect]
     Indication: BREAST CANCER METASTATIC
     Route: 042
  2. TRASTUZUMAB [Suspect]
     Route: 042
  3. VINFLUNINE [Suspect]
     Indication: BREAST CANCER METASTATIC
     Route: 042

REACTIONS (18)
  - Leukopenia [Unknown]
  - Neutropenia [Unknown]
  - Febrile neutropenia [Unknown]
  - Anaemia [Unknown]
  - Abdominal pain [Unknown]
  - Constipation [Unknown]
  - Ileus [Unknown]
  - Stomatitis [Unknown]
  - Fatigue [Unknown]
  - Neutropenic infection [Unknown]
  - Hyponatraemia [Unknown]
  - Arthralgia [Unknown]
  - Bone pain [Unknown]
  - Myalgia [Unknown]
  - Headache [Unknown]
  - Neuralgia [Unknown]
  - Peripheral sensory neuropathy [Unknown]
  - Insomnia [Unknown]
